FAERS Safety Report 20946150 (Version 1)
Quarter: 2022Q2

REPORT INFORMATION
  Report Type: Spontaneous
  Country: CN (occurrence: CN)
  Receive Date: 20220610
  Receipt Date: 20220610
  Transmission Date: 20220721
  Serious: Yes (Other)
  Sender: FDA-Public Use
  Company Number: CN-009507513-2206CHN001710

PATIENT
  Sex: Male
  Weight: 50 kg

DRUGS (3)
  1. CILASTATIN SODIUM\IMIPENEM [Suspect]
     Active Substance: CILASTATIN SODIUM\IMIPENEM
     Indication: Pneumonia
     Dosage: 500 MG, EVERY 6 HOURS
     Route: 041
     Dates: start: 20220523, end: 20220524
  2. PIPERACILLIN SODIUM\TAZOBACTAM SODIUM [Concomitant]
     Active Substance: PIPERACILLIN SODIUM\TAZOBACTAM SODIUM
     Indication: Pneumonia
     Dosage: 4.5 G, EVERY 8 HOURS
     Route: 041
     Dates: start: 20220514, end: 20220523
  3. LEVOFLOXACIN HYDROCHLORIDE [Concomitant]
     Active Substance: LEVOFLOXACIN HYDROCHLORIDE
     Indication: Pneumonia
     Dosage: 0.5 G, QD
     Route: 041
     Dates: start: 20220510, end: 20220523

REACTIONS (7)
  - Haematochezia [Unknown]
  - Diarrhoea [Recovering/Resolving]
  - Condition aggravated [Unknown]
  - Mucous stools [Unknown]
  - Faeces discoloured [Unknown]
  - Mucosal erosion [Unknown]
  - Intestinal mass [Unknown]

NARRATIVE: CASE EVENT DATE: 20220101
